FAERS Safety Report 6808989-8 (Version None)
Quarter: 2010Q2

REPORT INFORMATION
  Report Type: 
  Country: None (occurrence: None)
  Receive Date: 20100630
  Receipt Date: 20091106
  Transmission Date: 20101027
  Serious: No
  Sender: FDA-Public Use
  Company Number: US-PFIZER INC-2009197353

PATIENT
  Sex: Female
  Weight: 58.05 kg

DRUGS (19)
  1. TIKOSYN [Suspect]
     Indication: ATRIAL FIBRILLATION
     Dosage: 0.125 MG, 2X/DAY
  2. VALSARTAN [Concomitant]
     Dosage: 40 MG, 1X/DAY
     Route: 048
  3. CARTIA XT [Concomitant]
     Dosage: 240 MG, 1X/DAY
  4. ALDACTONE [Concomitant]
     Dosage: 25 MG, 1X/DAY
  5. FUROSEMIDE [Concomitant]
     Dosage: 40 MG IN AM, 20MG IN PM
  6. WARFARIN SODIUM [Concomitant]
     Dosage: UNK
  7. LESCOL [Concomitant]
     Dosage: 80 MG, 1X/DAY
  8. FLOVENT [Concomitant]
     Dosage: 220 MG, 2X/DAY
  9. ACETYLSALICYLIC ACID [Concomitant]
     Dosage: 81 MG, 1X/DAY
  10. AMOXICILLIN [Concomitant]
     Indication: DENTAL CARE
     Dosage: 2 MG, AS NEEDED
  11. FOSAMAX [Concomitant]
     Dosage: 70 MG, WEEKLY
     Route: 048
  12. KLOR-CON [Concomitant]
     Dosage: 20 MEQ, 1X/DAY
     Route: 048
  13. CENTRUM SILVER [Concomitant]
     Dosage: UNK
     Route: 048
  14. DOCUSATE SODIUM [Concomitant]
     Dosage: 100 MG, 2X/DAY
     Route: 048
  15. LOVAZA [Concomitant]
     Dosage: 2000 MG, 1X/DAY
     Route: 048
  16. PSYLLIUM [Concomitant]
     Dosage: 1 TABLET
     Route: 048
  17. OS-CAL D [Concomitant]
     Dosage: 500 MG, 2X/DAY
  18. XOPENEX [Concomitant]
     Dosage: 2 PUFFS
  19. FLONASE [Concomitant]
     Dosage: 2 PUFFS

REACTIONS (4)
  - BRONCHITIS [None]
  - INTERSTITIAL LUNG DISEASE [None]
  - NASOPHARYNGITIS [None]
  - PULMONARY FIBROSIS [None]
